FAERS Safety Report 23633350 (Version 1)
Quarter: 2024Q1

REPORT INFORMATION
  Report Type: Spontaneous
  Country: FI (occurrence: FI)
  Receive Date: 20240314
  Receipt Date: 20240314
  Transmission Date: 20240410
  Serious: Yes (Disabling)
  Sender: FDA-Public Use
  Company Number: None

PATIENT
  Age: 30 Year
  Sex: Female

DRUGS (1)
  1. XELJANZ [Suspect]
     Active Substance: TOFACITINIB CITRATE
     Indication: Colitis ulcerative
     Dosage: 5 MG, 2X/DAY
     Route: 048
     Dates: start: 2019, end: 20230921

REACTIONS (14)
  - Increased tendency to bruise [Recovered/Resolved with Sequelae]
  - Food allergy [Recovered/Resolved with Sequelae]
  - Ocular hyperaemia [Recovered/Resolved with Sequelae]
  - Dermatitis contact [Recovered/Resolved with Sequelae]
  - Idiopathic environmental intolerance [Recovered/Resolved with Sequelae]
  - Respiratory symptom [Recovered/Resolved with Sequelae]
  - Hypersensitivity [Recovered/Resolved with Sequelae]
  - Erythema [Recovered/Resolved with Sequelae]
  - Superficial vein prominence [Recovered/Resolved with Sequelae]
  - Nasal congestion [Recovered/Resolved with Sequelae]
  - Pruritus [Recovered/Resolved with Sequelae]
  - Eye pruritus [Recovered/Resolved with Sequelae]
  - Oedema peripheral [Recovered/Resolved with Sequelae]
  - Acne [Recovered/Resolved with Sequelae]

NARRATIVE: CASE EVENT DATE: 20190101
